FAERS Safety Report 14944130 (Version 1)
Quarter: 2018Q2

REPORT INFORMATION
  Report Type: Spontaneous
  Country: US (occurrence: US)
  Receive Date: 20180528
  Receipt Date: 20180528
  Transmission Date: 20180711
  Serious: Yes (Hospitalization, Other)
  Sender: FDA-Public Use
  Company Number: US-ELI_LILLY_AND_COMPANY-US201805008650

PATIENT
  Age: 9 Year
  Sex: Female
  Weight: 40 kg

DRUGS (3)
  1. PAXIL [Suspect]
     Active Substance: PAROXETINE HYDROCHLORIDE
     Indication: OBSESSIVE-COMPULSIVE DISORDER
     Dosage: UNK UNK, DAILY
     Route: 048
     Dates: start: 20021101, end: 200309
  2. ZOLOFT [Suspect]
     Active Substance: SERTRALINE HYDROCHLORIDE
     Indication: OBSESSIVE-COMPULSIVE DISORDER
     Dosage: 25 MG, TID
     Route: 048
     Dates: start: 200210, end: 20021101
  3. ZYPREXA [Suspect]
     Active Substance: OLANZAPINE
     Indication: PRODUCT USED FOR UNKNOWN INDICATION
     Dosage: UNK UNK, UNKNOWN
     Route: 065

REACTIONS (22)
  - Decreased appetite [Unknown]
  - Nightmare [Unknown]
  - Suicidal ideation [Unknown]
  - Anger [Unknown]
  - Bradycardia [Unknown]
  - Aggression [Unknown]
  - Myalgia [Unknown]
  - Abnormal behaviour [Unknown]
  - Dystonia [Unknown]
  - Agitation [Unknown]
  - Tachycardia [Unknown]
  - Arrhythmia [Unknown]
  - Eye movement disorder [Unknown]
  - Suicide attempt [Unknown]
  - Off label use [Unknown]
  - Cognitive disorder [Unknown]
  - Mood swings [Unknown]
  - Pain in extremity [Unknown]
  - Intentional self-injury [Unknown]
  - Swollen tongue [Unknown]
  - Fear [Unknown]
  - Depression [Unknown]

NARRATIVE: CASE EVENT DATE: 2002
